FAERS Safety Report 5157064-X (Version None)
Quarter: 2006Q4

REPORT INFORMATION
  Report Type: 
  Country: None (occurrence: None)
  Receive Date: 20061127
  Receipt Date: 20061114
  Transmission Date: 20070319
  Serious: Yes (Hospitalization, Other)
  Sender: FDA-Public Use
  Company Number: PHEH2006US14223

PATIENT
  Age: 70 Year
  Sex: Female

DRUGS (1)
  1. AREDIA [Suspect]
     Indication: RESORPTION BONE INCREASED
     Dates: start: 20030101, end: 20050101

REACTIONS (24)
  - ANXIETY [None]
  - ARTHRALGIA [None]
  - BACK PAIN [None]
  - CHRONIC OBSTRUCTIVE PULMONARY DISEASE [None]
  - COR PULMONALE [None]
  - DECREASED APPETITE [None]
  - DECREASED INTEREST [None]
  - DIABETES MELLITUS [None]
  - DYSPNOEA [None]
  - GENERAL PHYSICAL HEALTH DETERIORATION [None]
  - HYPERCAPNIA [None]
  - INJURY [None]
  - LIFE EXPECTANCY SHORTENED [None]
  - MOBILITY DECREASED [None]
  - MYELOMA RECURRENCE [None]
  - OEDEMA PERIPHERAL [None]
  - OSTEOMYELITIS [None]
  - OSTEONECROSIS [None]
  - OSTEOPOROSIS [None]
  - PAIN [None]
  - RASH [None]
  - RESPIRATORY ACIDOSIS [None]
  - SEQUESTRECTOMY [None]
  - WOUND DEBRIDEMENT [None]
